FAERS Safety Report 18942003 (Version 1)
Quarter: 2021Q1

REPORT INFORMATION
  Report Type: Spontaneous
  Country: US (occurrence: US)
  Receive Date: 20210225
  Receipt Date: 20210225
  Transmission Date: 20210420
  Serious: Yes (Other)
  Sender: FDA-Public Use
  Company Number: US-TEVA-2021-US-1883463

PATIENT
  Sex: Female

DRUGS (20)
  1. MARIJUANA OIL [Concomitant]
     Active Substance: CANNABIS SATIVA SEED OIL\HERBALS
  2. TRAZODONE [Concomitant]
     Active Substance: TRAZODONE HYDROCHLORIDE
  3. TRETINOIN. [Concomitant]
     Active Substance: TRETINOIN
  4. NORTRIPTYLINE [Concomitant]
     Active Substance: NORTRIPTYLINE
  5. TIZANIDINE. [Concomitant]
     Active Substance: TIZANIDINE
  6. DEXTROAMPHET SACCHARAT, AMPHET ASPARTATE, DEXTROAMPHET SULFATE AND AMPHET SULFAT [Concomitant]
     Active Substance: AMPHETAMINE ASPARTATE\AMPHETAMINE SULFATE\DEXTROAMPHETAMINE SACCHARATE\DEXTROAMPHETAMINE SULFATE
  7. VITAMIN D3 [Concomitant]
     Active Substance: CHOLECALCIFEROL
  8. DULOXETINE. [Concomitant]
     Active Substance: DULOXETINE
  9. COPAXONE [Suspect]
     Active Substance: GLATIRAMER ACETATE
     Indication: MULTIPLE SCLEROSIS
     Dosage: FORM STRENGTH AND DOSE: UNKNOWN
     Route: 065
     Dates: start: 201607
  10. ALPRAZOLAM. [Concomitant]
     Active Substance: ALPRAZOLAM
  11. DIPHENHYDRAMINE. [Concomitant]
     Active Substance: DIPHENHYDRAMINE
  12. METHYLPREDNISOLONE SODIUM SUCCINATE. [Concomitant]
     Active Substance: METHYLPREDNISOLONE SODIUM SUCCINATE
  13. VENTOLIN HFA [Concomitant]
     Active Substance: ALBUTEROL SULFATE
  14. BOTOX [Concomitant]
     Active Substance: ONABOTULINUMTOXINA
  15. KEPPRA [Concomitant]
     Active Substance: LEVETIRACETAM
  16. BIEST+PROGESTERONE+TESTOSTERONE [Concomitant]
  17. ESTRADIOL. [Concomitant]
     Active Substance: ESTRADIOL
  18. LISINOPRIL. [Concomitant]
     Active Substance: LISINOPRIL
  19. LUNESTA [Concomitant]
     Active Substance: ESZOPICLONE
  20. MULTIPLE VITAMINS [Concomitant]
     Active Substance: VITAMINS

REACTIONS (1)
  - Myelitis transverse [Unknown]
